FAERS Safety Report 8244080-4 (Version None)
Quarter: 2012Q1

REPORT INFORMATION
  Report Type: 
  Country: None (occurrence: None)
  Receive Date: 20120329
  Receipt Date: 20110915
  Transmission Date: 20120608
  Serious: No
  Sender: FDA-Public Use
  Company Number: US-MYLANLABS-2011S1019632

PATIENT
  Age: 65 Year
  Sex: Female

DRUGS (2)
  1. ESTRADIOL [Suspect]
     Indication: HORMONE REPLACEMENT THERAPY
     Dosage: CHANGED QW
     Route: 062
     Dates: start: 20110301, end: 20110901
  2. ESTRADIOL [Suspect]
     Dosage: CHANGED QW
     Route: 062
     Dates: start: 20110901

REACTIONS (1)
  - APPLICATION SITE RASH [None]
